FAERS Safety Report 5549526-8 (Version None)
Quarter: 2007Q4

REPORT INFORMATION
  Report Type: 
  Country: None (occurrence: None)
  Receive Date: 20071212
  Receipt Date: 20071130
  Transmission Date: 20080405
  Serious: Yes (Other)
  Sender: FDA-Public Use
  Company Number: SE-JNJFOC-20071200311

PATIENT
  Age: 50 Year
  Sex: Female

DRUGS (7)
  1. CONCERTA [Suspect]
     Indication: ATTENTION DEFICIT/HYPERACTIVITY DISORDER
     Route: 048
  2. OMEPRAZOLE [Concomitant]
  3. BETAPRED [Concomitant]
  4. PRONAXEN [Concomitant]
  5. BRICANYL [Concomitant]
  6. SINGULAIR [Concomitant]
  7. SACRETID [Concomitant]

REACTIONS (3)
  - DIPLOPIA [None]
  - VISION BLURRED [None]
  - VISUAL ACUITY REDUCED [None]
